FAERS Safety Report 4754434-6 (Version None)
Quarter: 2005Q3

REPORT INFORMATION
  Report Type: 
  Country: None (occurrence: None)
  Receive Date: 20050826
  Receipt Date: 20030303
  Transmission Date: 20060218
  Serious: Yes (Other)
  Sender: FDA-Public Use
  Company Number: KII-2003-0014151

PATIENT
  Sex: Male

DRUGS (3)
  1. OXYCONTIN [Suspect]
     Indication: PAIN
     Dosage: 80 MG, SEE TEXT
     Dates: start: 19990101, end: 20030101
  2. PERCOCET [Suspect]
     Dosage: SEE TEXT
  3. VICODIN [Suspect]
     Indication: PAIN

REACTIONS (1)
  - DRUG DEPENDENCE [None]
